FAERS Safety Report 5693195-3 (Version None)
Quarter: 2008Q2

REPORT INFORMATION
  Report Type: 
  Country: None (occurrence: None)
  Receive Date: 20080403
  Receipt Date: 20080319
  Transmission Date: 20081010
  Serious: No
  Sender: FDA-Public Use
  Company Number: US-BAYER-200817750NA

PATIENT
  Age: 49 Year
  Sex: Female

DRUGS (1)
  1. MAGNEVIST SINGLE USE [Suspect]
     Indication: NUCLEAR MAGNETIC RESONANCE IMAGING BRAIN
     Route: 042
     Dates: start: 20080208, end: 20080208

REACTIONS (3)
  - COUGH [None]
  - THROAT IRRITATION [None]
  - URTICARIA [None]
